FAERS Safety Report 14603190 (Version 1)
Quarter: 2018Q1

REPORT INFORMATION
  Report Type: Spontaneous
  Country: US (occurrence: US)
  Receive Date: 20180305
  Receipt Date: 20180305
  Transmission Date: 20180509
  Serious: No
  Sender: FDA-Public Use
  Company Number: None

PATIENT
  Age: 56 Year
  Sex: Female
  Weight: 58.06 kg

DRUGS (2)
  1. FENTANYL. [Suspect]
     Active Substance: FENTANYL
     Indication: BACK PAIN
     Dosage: 75MCG 1 PATCH EVERY 2 DAYS TRANSDERMAL
     Route: 062
  2. FENTANYL. [Suspect]
     Active Substance: FENTANYL
     Indication: RHEUMATOID ARTHRITIS
     Dosage: 75MCG 1 PATCH EVERY 2 DAYS TRANSDERMAL
     Route: 062

REACTIONS (4)
  - Nausea [None]
  - Abdominal discomfort [None]
  - Drug ineffective [None]
  - Therapy change [None]
